FAERS Safety Report 7243610-9 (Version None)
Quarter: 2011Q1

REPORT INFORMATION
  Report Type: 
  Country: None (occurrence: None)
  Receive Date: 20110125
  Receipt Date: 20110114
  Transmission Date: 20110831
  Serious: Yes (Other)
  Sender: FDA-Public Use
  Company Number: PHHO2011US01265

PATIENT

DRUGS (2)
  1. LBH589 [Suspect]
     Indication: LYMPHOMA
  2. AFINITOR [Suspect]
     Indication: LYMPHOMA

REACTIONS (1)
  - ATRIAL FIBRILLATION [None]
